FAERS Safety Report 19440791 (Version 1)
Quarter: 2021Q2

REPORT INFORMATION
  Report Type: Spontaneous
  Country: US (occurrence: US)
  Receive Date: 20210621
  Receipt Date: 20210621
  Transmission Date: 20210717
  Serious: No
  Sender: FDA-Public Use
  Company Number: US-GLENMARK PHARMACEUTICALS-2021GMK053642

PATIENT

DRUGS (1)
  1. PIMECROLIMUS CREAM, 1% [Suspect]
     Active Substance: PIMECROLIMUS
     Indication: DERMATITIS
     Dosage: UNK, BID
     Route: 061
     Dates: start: 20210416, end: 20210416

REACTIONS (2)
  - Application site pain [Recovered/Resolved]
  - Application site erythema [Not Recovered/Not Resolved]

NARRATIVE: CASE EVENT DATE: 20210417
